FAERS Safety Report 12516102 (Version 6)
Quarter: 2018Q2

REPORT INFORMATION
  Report Type: Report from Study
  Country: IL (occurrence: IL)
  Receive Date: 20160630
  Receipt Date: 20180529
  Transmission Date: 20180711
  Serious: No
  Sender: FDA-Public Use
  Company Number: IL-JNJFOC-20160623588

PATIENT
  Sex: Male

DRUGS (2)
  1. STELARA [Suspect]
     Active Substance: USTEKINUMAB
     Indication: PSORIASIS
     Route: 058
  2. STELARA [Suspect]
     Active Substance: USTEKINUMAB
     Indication: PSORIASIS
     Route: 058
     Dates: start: 20150525

REACTIONS (6)
  - Nasopharyngitis [Recovered/Resolved]
  - Accidental exposure to product [Unknown]
  - Hepatic enzyme increased [Unknown]
  - Underdose [Unknown]
  - Psoriasis [Recovering/Resolving]
  - Wrong technique in product usage process [Unknown]
